FAERS Safety Report 18524304 (Version 1)
Quarter: 2020Q4

REPORT INFORMATION
  Report Type: Report from Study
  Country: US (occurrence: US)
  Receive Date: 20201119
  Receipt Date: 20201119
  Transmission Date: 20210114
  Serious: No
  Sender: FDA-Public Use
  Company Number: NVSC2020US302081

PATIENT
  Sex: Male

DRUGS (1)
  1. ENTRESTO [Suspect]
     Active Substance: SACUBITRIL\VALSARTAN
     Indication: PRODUCT USED FOR UNKNOWN INDICATION
     Dosage: 50 MG, BID(49.51MG)
     Route: 048

REACTIONS (4)
  - Product dose omission issue [Unknown]
  - Traumatic lung injury [Unknown]
  - Procedural complication [Unknown]
  - Somnolence [Unknown]
